FAERS Safety Report 6682297-0 (Version None)
Quarter: 2010Q2

REPORT INFORMATION
  Report Type: 
  Country: None (occurrence: None)
  Receive Date: 20100414
  Receipt Date: 20100414
  Transmission Date: 20101027
  Serious: Yes (Other)
  Sender: FDA-Public Use
  Company Number: None

PATIENT
  Sex: Female
  Weight: 64.4108 kg

DRUGS (3)
  1. LYRICA [Suspect]
     Indication: FIBROMYALGIA
     Dosage: 4 CAPSULES 2-A.M ; 2 P.M. - DAILY BY MOUTH
     Route: 048
     Dates: start: 20091201
  2. SIMVASTATIN [Suspect]
     Dosage: 1 TABLET BEDTIME BY MOUTH
     Route: 048
     Dates: start: 20091201
  3. ? [Concomitant]

REACTIONS (13)
  - CHEST DISCOMFORT [None]
  - DISTURBANCE IN ATTENTION [None]
  - DIZZINESS [None]
  - DRY MOUTH [None]
  - DYSPNOEA [None]
  - FACE OEDEMA [None]
  - LIP BLISTER [None]
  - LIP SWELLING [None]
  - OEDEMA PERIPHERAL [None]
  - PYREXIA [None]
  - SWOLLEN TONGUE [None]
  - VIOLENCE-RELATED SYMPTOM [None]
  - VISION BLURRED [None]
